FAERS Safety Report 5936145-4 (Version None)
Quarter: 2008Q4

REPORT INFORMATION
  Report Type: 
  Country: None (occurrence: None)
  Receive Date: 20081028
  Receipt Date: 20081015
  Transmission Date: 20090506
  Serious: Yes (Other)
  Sender: FDA-Public Use
  Company Number: 100#03#2008-05034

PATIENT
  Age: 80 Year
  Sex: Male

DRUGS (6)
  1. CIPROFLOXACIN [Suspect]
     Indication: DEVICE RELATED INFECTION
  2. LINEZOLID [Suspect]
     Indication: DEVICE RELATED INFECTION
  3. MEROPENEM (MEROPENEM) [Suspect]
     Indication: DEVICE RELATED INFECTION
  4. VANCOMYCIN [Suspect]
     Indication: DEVICE RELATED INFECTION
  5. PRISTINAMYCIN (PRISTINAMYCIN) [Suspect]
     Indication: DEVICE RELATED INFECTION
  6. PRISTINAMYCIN (PRISTINAMYCIN) [Suspect]
     Indication: MULTIPLE-DRUG RESISTANCE

REACTIONS (2)
  - MULTIPLE-DRUG RESISTANCE [None]
  - TREATMENT FAILURE [None]
